FAERS Safety Report 17869169 (Version 2)
Quarter: 2021Q3

REPORT INFORMATION
  Report Type: Spontaneous
  Country: CA (occurrence: CA)
  Receive Date: 20200608
  Receipt Date: 20210714
  Transmission Date: 20211014
  Serious: Yes (Other)
  Sender: FDA-Public Use
  Company Number: CA-ROCHE-2612844

PATIENT
  Age: 49 Year
  Sex: Female

DRUGS (12)
  1. CLODRONATE DISODIUM [Suspect]
     Active Substance: CLODRONATE DISODIUM
     Indication: BREAST CANCER
     Route: 065
  2. ERIBULIN MESILATE [Suspect]
     Active Substance: ERIBULIN
     Indication: BREAST CANCER
     Route: 065
  3. FULVESTRANT. [Suspect]
     Active Substance: FULVESTRANT
     Indication: BREAST CANCER
     Route: 005
  4. LETROZOLE. [Suspect]
     Active Substance: LETROZOLE
     Indication: BREAST CANCER
     Route: 065
  5. CLODRONATE [Suspect]
     Active Substance: CLODRONATE DISODIUM
     Indication: BREAST CANCER
     Route: 065
  6. PACLITAXEL. [Suspect]
     Active Substance: PACLITAXEL
     Indication: BREAST CANCER
     Route: 042
  7. HALAVEN [Suspect]
     Active Substance: ERIBULIN MESYLATE
     Indication: BREAST CANCER
     Route: 065
  8. IBRANCE [Suspect]
     Active Substance: PALBOCICLIB
     Indication: BREAST CANCER
     Route: 065
  9. TAMOXIFEN [Suspect]
     Active Substance: TAMOXIFEN
     Indication: BREAST CANCER
     Route: 065
  10. CLODRONIC ACID [Suspect]
     Active Substance: CLODRONIC ACID
     Indication: BREAST CANCER
     Route: 065
  11. PALBOCICLIB [Suspect]
     Active Substance: PALBOCICLIB
     Indication: BREAST CANCER
     Route: 065
  12. XELODA [Suspect]
     Active Substance: CAPECITABINE
     Indication: BREAST CANCER
     Route: 065

REACTIONS (7)
  - Asthenia [Unknown]
  - Headache [Unknown]
  - Platelet count decreased [Unknown]
  - Protein total increased [Unknown]
  - Immunosuppression [Unknown]
  - Neoplasm progression [Unknown]
  - Meningoencephalitis herpetic [Unknown]
